FAERS Safety Report 9326088 (Version 1)
Quarter: 2013Q2

REPORT INFORMATION
  Report Type: Spontaneous
  Country: US (occurrence: None)
  Receive Date: 20130603
  Receipt Date: 20130603
  Transmission Date: 20140414
  Serious: Yes (Other)
  Sender: FDA-Public Use
  Company Number: None

PATIENT
  Age: 47 Year
  Sex: Female
  Weight: 53.98 kg

DRUGS (1)
  1. CIPROFLOXACN [Suspect]
     Indication: URINARY TRACT INFECTION
     Dosage: 1 TABLET TWICE DAILY PO
     Route: 048

REACTIONS (6)
  - Arthralgia [None]
  - Asthenia [None]
  - Pain in extremity [None]
  - Gait disturbance [None]
  - Fear [None]
  - Tendon injury [None]
